FAERS Safety Report 9805453 (Version 1)
Quarter: 2014Q1

REPORT INFORMATION
  Report Type: Spontaneous
  Country: US (occurrence: None)
  Receive Date: 20140108
  Receipt Date: 20140108
  Transmission Date: 20141002
  Serious: Yes (Other)
  Sender: FDA-Public Use
  Company Number: None

PATIENT
  Age: 36 Year
  Sex: Female
  Weight: 75.75 kg

DRUGS (3)
  1. MINASTRIN 24 FE [Suspect]
     Indication: CONTRACEPTION
     Dosage: 1 PILL
     Route: 048
     Dates: start: 20131215
  2. OMEPRAZOLE [Concomitant]
  3. LORATADINE [Concomitant]

REACTIONS (8)
  - Drug level decreased [None]
  - Depression [None]
  - Irritability [None]
  - Menstruation irregular [None]
  - Dysmenorrhoea [None]
  - Product formulation issue [None]
  - Product substitution issue [None]
  - Drug level changed [None]
